FAERS Safety Report 16794974 (Version 1)
Quarter: 2019Q3

REPORT INFORMATION
  Report Type: Report from Study
  Country: CA (occurrence: CA)
  Receive Date: 20190911
  Receipt Date: 20190911
  Transmission Date: 20191005
  Serious: Yes (Disabling, Other)
  Sender: FDA-Public Use
  Company Number: CA-NALPROPION PHARMACEUTICALS INC.-2019-008502

PATIENT

DRUGS (3)
  1. CONTRAVE [Suspect]
     Active Substance: BUPROPION HYDROCHLORIDE\NALTREXONE HYDROCHLORIDE
     Indication: WEIGHT CONTROL
     Dosage: 1 TABLET DAILY (1 DOSAGE FORMS,1 IN 1 D)
     Route: 048
     Dates: start: 20181110, end: 20181116
  2. CONTRAVE [Suspect]
     Active Substance: BUPROPION HYDROCHLORIDE\NALTREXONE HYDROCHLORIDE
     Dosage: 3 TABLETS DAILY
     Route: 048
     Dates: start: 20181124
  3. CONTRAVE [Suspect]
     Active Substance: BUPROPION HYDROCHLORIDE\NALTREXONE HYDROCHLORIDE
     Dosage: 2 TABLETS DAILY
     Route: 048
     Dates: start: 20181117, end: 20181123

REACTIONS (5)
  - Neuralgia [Not Recovered/Not Resolved]
  - Drug titration error [Unknown]
  - Myalgia [Not Recovered/Not Resolved]
  - Product prescribing error [Unknown]
  - Gait inability [Unknown]

NARRATIVE: CASE EVENT DATE: 2018
